FAERS Safety Report 12779740 (Version 1)
Quarter: 2016Q3

REPORT INFORMATION
  Report Type: Spontaneous
  Country: US (occurrence: US)
  Receive Date: 20160926
  Receipt Date: 20160926
  Transmission Date: 20161109
  Serious: No
  Sender: FDA-Public Use
  Company Number: US-PFIZER INC-2016445210

PATIENT
  Age: 57 Year
  Sex: Female

DRUGS (15)
  1. DEPAKOTE [Suspect]
     Active Substance: DIVALPROEX SODIUM
  2. IBUPROFEN. [Suspect]
     Active Substance: IBUPROFEN
  3. BUTALBITAL, ACETAMINOPHEN, AND CAFFEINE [Suspect]
     Active Substance: ACETAMINOPHEN\BUTALBITAL\CAFFEINE
  4. MEMANTINE HCL [Suspect]
     Active Substance: MEMANTINE
  5. TOPAMAX [Suspect]
     Active Substance: TOPIRAMATE
  6. NAMENDA [Suspect]
     Active Substance: MEMANTINE HYDROCHLORIDE
     Dosage: UNK
  7. AMBIEN [Suspect]
     Active Substance: ZOLPIDEM TARTRATE
  8. ZALEPLON. [Suspect]
     Active Substance: ZALEPLON
  9. ADVAIR HFA [Suspect]
     Active Substance: FLUTICASONE PROPIONATE\SALMETEROL XINAFOATE
  10. FLUOXETINE [Suspect]
     Active Substance: FLUOXETINE HYDROCHLORIDE
  11. ALLURA RED AC [Suspect]
     Active Substance: FD+C RED NO. 40
  12. DICLOFENAC SODIUM. [Suspect]
     Active Substance: DICLOFENAC SODIUM
     Dosage: UNK
  13. SONATA [Suspect]
     Active Substance: ZALEPLON
     Dosage: UNK
  14. FIORICET [Suspect]
     Active Substance: ACETAMINOPHEN\BUTALBITAL\CAFFEINE
     Dosage: UNK
  15. PROZAC [Suspect]
     Active Substance: FLUOXETINE HYDROCHLORIDE
     Dosage: UNK

REACTIONS (1)
  - Drug hypersensitivity [Unknown]
